FAERS Safety Report 8113574-4 (Version None)
Quarter: 2012Q1

REPORT INFORMATION
  Report Type: 
  Country: None (occurrence: None)
  Receive Date: 20120131
  Receipt Date: 20110819
  Transmission Date: 20120608
  Serious: No
  Sender: FDA-Public Use
  Company Number: B0740812A

PATIENT
  Age: 50 Year
  Sex: Female
  Weight: 64.8644 kg

DRUGS (2)
  1. RANITIDINE HYDROCHLORIDE [Suspect]
     Indication: GASTROENTERITIS
     Dosage: SINGLE DOSE / INTRAVENOUS
     Route: 042
     Dates: start: 20110812
  2. DIMENHYDRINATE [Concomitant]

REACTIONS (2)
  - CHILLS [None]
  - PRODUCT QUALITY ISSUE [None]
